FAERS Safety Report 4479788-X (Version None)
Quarter: 2004Q4

REPORT INFORMATION
  Report Type: 
  Country: None (occurrence: None)
  Receive Date: 20041020
  Receipt Date: 20041014
  Transmission Date: 20050328
  Serious: Yes (Other)
  Sender: FDA-Public Use
  Company Number: PHBS2004JP13798

PATIENT
  Age: 42 Year
  Sex: Male

DRUGS (2)
  1. GLEEVEC [Suspect]
     Indication: CHRONIC MYELOID LEUKAEMIA
     Dosage: 400 MG/D
     Route: 048
     Dates: start: 20020507
  2. GLEEVEC [Suspect]
     Dosage: 300 MG/D
     Route: 048

REACTIONS (2)
  - PANCYTOPENIA [None]
  - TRISOMY 8 [None]
